FAERS Safety Report 14836853 (Version 4)
Quarter: 2025Q2

REPORT INFORMATION
  Report Type: Spontaneous
  Country: RS (occurrence: RS)
  Receive Date: 20180502
  Receipt Date: 20250410
  Transmission Date: 20250716
  Serious: Yes (Hospitalization)
  Sender: SANOFI AVENTIS
  Company Number: RS-SA-2018SA120900

PATIENT
  Age: 67 Year
  Sex: Male

DRUGS (2)
  1. BCG LIVE [Suspect]
     Active Substance: BCG LIVE
     Indication: Bladder cancer
     Route: 043
     Dates: end: 201011
  2. BCG LIVE [Suspect]
     Active Substance: BCG LIVE
     Indication: Intravesical immunotherapy

REACTIONS (5)
  - Cutaneous tuberculosis [Recovered/Resolved]
  - Inflammation [Recovered/Resolved]
  - Pain [Recovered/Resolved]
  - Erythema [Recovered/Resolved]
  - Rash erythematous [Recovered/Resolved]

NARRATIVE: CASE EVENT DATE: 20141201
